FAERS Safety Report 20132207 (Version 1)
Quarter: 2021Q4

REPORT INFORMATION
  Report Type: Spontaneous
  Country: JP (occurrence: JP)
  Receive Date: 20211130
  Receipt Date: 20211130
  Transmission Date: 20220303
  Serious: Yes (Other)
  Sender: FDA-Public Use
  Company Number: JP-CHUGAI-2021028762

PATIENT
  Age: 8 Decade
  Sex: Female

DRUGS (2)
  1. ALECENSA [Suspect]
     Active Substance: ALECTINIB HYDROCHLORIDE
     Indication: Non-small cell lung cancer
     Dosage: UNK
     Route: 048
  2. CERITINIB [Concomitant]
     Active Substance: CERITINIB

REACTIONS (3)
  - Patella fracture [Unknown]
  - Oedema [Recovered/Resolved]
  - Fall [Unknown]
